FAERS Safety Report 10219762 (Version 1)
Quarter: 2014Q1

REPORT INFORMATION
  Report Type: Spontaneous
  Country: US (occurrence: None)
  Receive Date: 20140306
  Receipt Date: 20140306
  Transmission Date: 20141002
  Serious: Yes (Other)
  Sender: FDA-Public Use
  Company Number: 163-21880-12080514

PATIENT
  Age: 64 Year
  Sex: Male
  Weight: 117.03 kg

DRUGS (11)
  1. REVLIMID (LENALIDOMIDE) (25 MILLIGRAM, CAPSULES) [Suspect]
     Indication: PLASMA CELL MYELOMA
     Dosage: 25 MG, 21 IN 21 D, PO
     Route: 048
     Dates: start: 201008
  2. ZOMETA (ZOLEDRONIC ACID) [Concomitant]
  3. DEXAMETHASONE (DEXAMETHASONE) [Concomitant]
  4. OXYCODONE (OXYCODONE) [Concomitant]
  5. XANAX (ALPRAZOLAM) [Concomitant]
  6. VIT B12 (CYANOCOBALAMIN) [Concomitant]
  7. ASA (ACETYLSALICYLIC ACID) [Concomitant]
  8. CELEBREX (CELECOXIB) [Concomitant]
  9. VITAMIN D (ERGOCALCIFEROL) [Concomitant]
  10. FISH OIL (FISH OIL) [Concomitant]
  11. VELCADE (BORTEZOMIB) [Concomitant]

REACTIONS (7)
  - Platelet count decreased [None]
  - Pancytopenia [None]
  - Femur fracture [None]
  - Plasma cell myeloma [None]
  - Monoclonal gammopathy [None]
  - Anaemia [None]
  - Neuropathy peripheral [None]
